FAERS Safety Report 6064410-1 (Version None)
Quarter: 2009Q1

REPORT INFORMATION
  Report Type: 
  Country: None (occurrence: None)
  Receive Date: 20090203
  Receipt Date: 20090203
  Transmission Date: 20090719
  Serious: Yes (Hospitalization, Other)
  Sender: FDA-Public Use
  Company Number: None

PATIENT
  Sex: Male
  Weight: 110.91 kg

DRUGS (11)
  1. SEROQUEL [Suspect]
     Dosage: 200MG TABLET 200 MG QHS ORAL
     Dates: start: 20090112, end: 20090202
  2. CYMBALTA [Concomitant]
  3. EFFEXOR SR (VENLAFAXINE EXTENDED RELEASE) [Concomitant]
  4. LAMICTAL [Concomitant]
  5. LITHIUM CARBONATE SUSTAINED RELEASE [Concomitant]
  6. MULTIVITAMIN THERAPEUTIC (THERAPEUTIC MULTIVITAMINS) [Concomitant]
  7. NEURONTIN [Concomitant]
  8. PROVIGIL [Concomitant]
  9. SIMVASTATIN [Concomitant]
  10. VERAPAMIL HCL [Concomitant]
  11. VITAMIN B12 [Concomitant]

REACTIONS (1)
  - ATRIOVENTRICULAR BLOCK FIRST DEGREE [None]
